FAERS Safety Report 5397013-2 (Version None)
Quarter: 2007Q3

REPORT INFORMATION
  Report Type: 
  Country: None (occurrence: None)
  Receive Date: 20070725
  Receipt Date: 20070712
  Transmission Date: 20080115
  Serious: Yes (Death)
  Sender: FDA-Public Use
  Company Number: DK-SHR-DK-2007-026308

PATIENT
  Age: 32 Year
  Sex: Female

DRUGS (2)
  1. YASMIN [Suspect]
     Indication: ORAL CONTRACEPTION
     Dosage: UNK TAB(S), 21D/28D
     Route: 048
     Dates: start: 20030925
  2. VOLTAREN [Concomitant]
     Indication: PAIN
     Dosage: 50 MILLIGRAM(S)
     Route: 048
     Dates: start: 20041012

REACTIONS (2)
  - ABDOMINAL PAIN [None]
  - PULMONARY EMBOLISM [None]
